FAERS Safety Report 17179850 (Version 1)
Quarter: 2019Q4

REPORT INFORMATION
  Report Type: Spontaneous
  Country: US (occurrence: US)
  Receive Date: 20191220
  Receipt Date: 20191220
  Transmission Date: 20200122
  Serious: Yes (Hospitalization)
  Sender: FDA-Public Use
  Company Number: US-ROCHE-2499432

PATIENT
  Age: 84 Year
  Sex: Female

DRUGS (2)
  1. ESBRIET [Suspect]
     Active Substance: PIRFENIDONE
     Dosage: 1 PILL
     Route: 065
     Dates: start: 2019
  2. ESBRIET [Suspect]
     Active Substance: PIRFENIDONE
     Indication: PULMONARY FIBROSIS
     Dosage: 3 PILLS
     Route: 065
     Dates: start: 2019

REACTIONS (7)
  - Diarrhoea [Unknown]
  - Vertigo [Unknown]
  - Fall [Unknown]
  - Myocardial infarction [Recovered/Resolved]
  - Hypotension [Unknown]
  - Nausea [Unknown]
  - Dizziness [Unknown]
